FAERS Safety Report 12313737 (Version 3)
Quarter: 2016Q2

REPORT INFORMATION
  Report Type: Report from Study
  Country: JP (occurrence: JP)
  Receive Date: 20160428
  Receipt Date: 20160616
  Transmission Date: 20160815
  Serious: Yes (Death, Hospitalization)
  Sender: FDA-Public Use
  Company Number: JP-EISAI MEDICAL RESEARCH-EC-2016-016463

PATIENT
  Age: 58 Year
  Sex: Female
  Weight: 44 kg

DRUGS (8)
  1. PROHEPARUM [Concomitant]
     Active Substance: CHOLINE BITARTRATE\CYSTEINE\INOSITOL\MAMMAL LIVER
  2. BLOPRESS [Concomitant]
     Active Substance: CANDESARTAN CILEXETIL
  3. ADALAT CC [Concomitant]
     Active Substance: NIFEDIPINE
  4. OXINORM [Concomitant]
     Active Substance: OXYCODONE HYDROCHLORIDE
  5. OXYCONTIN [Concomitant]
     Active Substance: OXYCODONE HYDROCHLORIDE
  6. HALAVEN [Suspect]
     Active Substance: ERIBULIN MESYLATE
     Indication: BREAST CANCER RECURRENT
     Route: 041
     Dates: start: 20150115, end: 20150219
  7. LOXONIN [Concomitant]
     Active Substance: LOXOPROFEN SODIUM
  8. CYTOTEC [Concomitant]
     Active Substance: MISOPROSTOL

REACTIONS (2)
  - Neutropenia [Recovered/Resolved]
  - Malignant neoplasm progression [Fatal]

NARRATIVE: CASE EVENT DATE: 20150226
